FAERS Safety Report 9678917 (Version 1)
Quarter: 2013Q4

REPORT INFORMATION
  Report Type: Spontaneous
  Country: MX (occurrence: MX)
  Receive Date: 20131108
  Receipt Date: 20131108
  Transmission Date: 20140711
  Serious: Yes (Death)
  Sender: FDA-Public Use
  Company Number: MX-PFIZER INC-2013317654

PATIENT
  Age: 27 Year
  Sex: Female
  Weight: 64 kg

DRUGS (6)
  1. CELEBREX [Suspect]
     Dosage: 200 MG, UNK
     Route: 048
     Dates: start: 20130907
  2. MELOXICAM [Concomitant]
     Indication: PAIN
     Dosage: 1 DF, 3X/DAY
     Route: 048
     Dates: start: 20131002
  3. MORFIN [Concomitant]
     Indication: PAIN
     Dosage: 0.25 DF, 4X/DAY
     Route: 048
     Dates: start: 20131002
  4. BUPRENORPHINE [Concomitant]
     Indication: PAIN
     Dosage: 1 DF, 1X/DAY
     Route: 048
     Dates: start: 20131002
  5. CARBAMAZEPINE [Concomitant]
     Indication: PAIN
     Dosage: 0.5 DF, 2X/DAY
     Route: 048
     Dates: start: 20131002
  6. MEMANTINE [Concomitant]
     Indication: THROMBOSIS PROPHYLAXIS
     Dosage: 1 DF, 1X/DAY
     Route: 048
     Dates: start: 20131002

REACTIONS (2)
  - Cervix carcinoma [Fatal]
  - Malignant neoplasm progression [Fatal]
